FAERS Safety Report 10537420 (Version 6)
Quarter: 2015Q3

REPORT INFORMATION
  Report Type: Report from Study
  Country: DE (occurrence: DE)
  Receive Date: 20141023
  Receipt Date: 20150910
  Transmission Date: 20151125
  Serious: Yes (Death, Life-Threatening, Hospitalization, Other)
  Sender: FDA-Public Use
  Company Number: DE-BRISTOL-MYERS SQUIBB COMPANY-21500210

PATIENT
  Age: 77 Year
  Sex: Male
  Weight: 65 kg

DRUGS (4)
  1. CETUXIMAB [Suspect]
     Active Substance: CETUXIMAB
     Dosage: 250 MG/M2, UNK
     Route: 042
     Dates: end: 20140929
  2. 5-FLUOROURACIL                     /00098801/ [Concomitant]
     Active Substance: FLUOROURACIL
     Indication: LARYNGEAL CANCER
     Dosage: 1000 MG/M2, ONE TIME DOSE
     Route: 042
     Dates: start: 20140922, end: 20140927
  3. CETUXIMAB [Suspect]
     Active Substance: CETUXIMAB
     Indication: LARYNGEAL CANCER
     Dosage: 400 MG/M2, UNK
     Route: 042
     Dates: start: 20140922
  4. CISPLATIN. [Suspect]
     Active Substance: CISPLATIN
     Indication: LARYNGEAL CANCER
     Dosage: 174.18 MG, UNK
     Route: 042
     Dates: start: 20140922, end: 20140927

REACTIONS (6)
  - Leukocytosis [Fatal]
  - Acute abdomen [Fatal]
  - Leukopenia [Fatal]
  - Small intestinal perforation [Fatal]
  - Gastrointestinal inflammation [Fatal]
  - Sepsis [Fatal]

NARRATIVE: CASE EVENT DATE: 20141003
